FAERS Safety Report 24061551 (Version 4)
Quarter: 2024Q4

REPORT INFORMATION
  Report Type: Report from Study
  Country: FR (occurrence: FR)
  Receive Date: 20240708
  Receipt Date: 20241026
  Transmission Date: 20250115
  Serious: Yes (Hospitalization)
  Sender: ALEXION PHARMACEUTICALS
  Company Number: 2024A150962

PATIENT
  Age: 45 Year
  Weight: 73 kg

DRUGS (16)
  1. ANIFROLUMAB [Suspect]
     Active Substance: ANIFROLUMAB
     Indication: Systemic lupus erythematosus
     Dosage: 300 MILLIGRAM, UNK, FREQUENCY: Q4WK
  2. ANIFROLUMAB [Suspect]
     Active Substance: ANIFROLUMAB
     Dosage: 300 MILLIGRAM, UNK, FREQUENCY: Q4WK
  3. ANIFROLUMAB [Suspect]
     Active Substance: ANIFROLUMAB
     Dosage: 300 MILLIGRAM, UNK, FREQUENCY: Q4WK
  4. ANIFROLUMAB [Suspect]
     Active Substance: ANIFROLUMAB
     Dosage: 300 MILLIGRAM, UNK, FREQUENCY: Q4WK
  5. ANIFROLUMAB [Suspect]
     Active Substance: ANIFROLUMAB
     Dosage: 300 MILLIGRAM, UNK, FREQUENCY: Q4WK
  6. ANIFROLUMAB [Suspect]
     Active Substance: ANIFROLUMAB
     Dosage: 300 MILLIGRAM, UNK, FREQUENCY: Q4WK
  7. ANIFROLUMAB [Suspect]
     Active Substance: ANIFROLUMAB
     Dosage: 300 MILLIGRAM, UNK, FREQUENCY: Q4WK
  8. ANIFROLUMAB [Suspect]
     Active Substance: ANIFROLUMAB
     Dosage: 300 MILLIGRAM, UNK, FREQUENCY: Q4WK
  9. PLAQUENIL [Concomitant]
     Active Substance: HYDROXYCHLOROQUINE SULFATE
     Indication: Systemic lupus erythematosus
     Dosage: 400 MILLIGRAM, QD
  10. PLAQUENIL [Concomitant]
     Active Substance: HYDROXYCHLOROQUINE SULFATE
     Dosage: 400 MILLIGRAM, QD
  11. PREDNISONE [Concomitant]
     Active Substance: PREDNISONE
     Indication: Systemic lupus erythematosus
     Dosage: 5 MILLIGRAM, QD
  12. PREDNISONE [Concomitant]
     Active Substance: PREDNISONE
     Dosage: 5 MILLIGRAM, QD
  13. VALACYCLOVIR HYDROCHLORIDE [Concomitant]
     Active Substance: VALACYCLOVIR HYDROCHLORIDE
     Indication: Varicella zoster virus infection
     Dosage: 500 MILLIGRAM, QD
  14. VALACYCLOVIR HYDROCHLORIDE [Concomitant]
     Active Substance: VALACYCLOVIR HYDROCHLORIDE
     Dosage: 500 MILLIGRAM, QD
  15. METHOTREXATE SODIUM [Concomitant]
     Active Substance: METHOTREXATE SODIUM
     Indication: Rheumatoid arthritis
     Dosage: 1 TIME PER WEEK
  16. METHOTREXATE SODIUM [Concomitant]
     Active Substance: METHOTREXATE SODIUM
     Dosage: 1 TIME PER WEEK

REACTIONS (1)
  - Tonsillitis streptococcal [Recovered/Resolved]
